FAERS Safety Report 12420747 (Version 2)
Quarter: 2016Q2

REPORT INFORMATION
  Report Type: Spontaneous
  Country: US (occurrence: US)
  Receive Date: 20160531
  Receipt Date: 20160610
  Transmission Date: 20160815
  Serious: No
  Sender: FDA-Public Use
  Company Number: US-BAYER-2016-104026

PATIENT
  Age: 22 Year
  Sex: Male

DRUGS (2)
  1. GADAVIST [Suspect]
     Active Substance: GADOBUTROL
     Indication: ABSCESS
     Dosage: STRENGTH / FORMULATION: 6.5 ML, INJECTION
     Dates: start: 20160525, end: 20160525
  2. GADAVIST [Suspect]
     Active Substance: GADOBUTROL
     Indication: OSTEOMYELITIS

REACTIONS (3)
  - Pruritus [None]
  - Product use issue [None]
  - Urticaria [None]
